FAERS Safety Report 21700194 (Version 1)
Quarter: 2022Q4

REPORT INFORMATION
  Report Type: Spontaneous
  Country: DE (occurrence: DE)
  Receive Date: 20221208
  Receipt Date: 20221208
  Transmission Date: 20230113
  Serious: Yes (Other)
  Sender: FDA-Public Use
  Company Number: DE-002147023-PHHY2017DE172094

PATIENT
  Age: 25 Year
  Sex: Male

DRUGS (2)
  1. DABRAFENIB [Suspect]
     Active Substance: DABRAFENIB
     Indication: BRAF V600E mutation positive
     Dosage: 150 MG, BID
     Route: 048
  2. DABRAFENIB [Suspect]
     Active Substance: DABRAFENIB
     Indication: Malignant glioma

REACTIONS (4)
  - Malignant glioma [Unknown]
  - Malignant neoplasm progression [Unknown]
  - Hidradenitis [Unknown]
  - Product use in unapproved indication [Unknown]
